FAERS Safety Report 9966296 (Version 2)
Quarter: 2014Q1

REPORT INFORMATION
  Report Type: Report from Study
  Country: US (occurrence: US)
  Receive Date: 20140305
  Receipt Date: 20140305
  Transmission Date: 20141002
  Serious: No
  Sender: FDA-Public Use
  Company Number: US-ABBVIE-13P-163-1086699-00

PATIENT
  Age: 71 Year
  Sex: Female

DRUGS (15)
  1. HUMIRA [Suspect]
     Indication: CROHN^S DISEASE
     Dates: start: 20130321
  2. PREDNISONE [Suspect]
     Indication: PRODUCT USED FOR UNKNOWN INDICATION
     Dosage: FOR 2 WEEKS
  3. PREDNISONE [Suspect]
     Dosage: X 1 WEEK
  4. PREDNISONE [Suspect]
     Dosage: X 1 WEEK
  5. PREDNISONE [Suspect]
     Dosage: X 1 WEEK
  6. PREDNISONE [Suspect]
     Dosage: X 1 WEEK
  7. PREDNISONE [Suspect]
     Dosage: QOD
  8. COLAZAL [Concomitant]
     Indication: COLITIS ULCERATIVE
  9. LEVOTHYROXINE [Concomitant]
     Indication: PRODUCT USED FOR UNKNOWN INDICATION
  10. LEVOTHYROXINE [Concomitant]
  11. LISINOPRIL/HCTZ [Concomitant]
     Indication: HYPERTENSION
     Dosage: 20/12.5 MG DAILY
  12. AMLODIPINE [Concomitant]
  13. ZETIA [Concomitant]
     Indication: BLOOD CHOLESTEROL INCREASED
     Dosage: DAILY
  14. MULTIVITAMIN [Concomitant]
     Indication: VITAMIN SUPPLEMENTATION
  15. VIACTIVE CALCIUM CHEWS [Concomitant]
     Indication: MINERAL SUPPLEMENTATION

REACTIONS (6)
  - Drug dispensing error [Unknown]
  - Rectal haemorrhage [Unknown]
  - Defaecation urgency [Unknown]
  - Drug ineffective [Unknown]
  - Weight increased [Not Recovered/Not Resolved]
  - Swelling face [Not Recovered/Not Resolved]
